FAERS Safety Report 20881481 (Version 2)
Quarter: 2023Q2

REPORT INFORMATION
  Report Type: Spontaneous
  Country: US (occurrence: US)
  Receive Date: 20220526
  Receipt Date: 20230516
  Transmission Date: 20230721
  Serious: No
  Sender: FDA-Public Use
  Company Number: US-RADIUS HEALTH INC.-2022US001478

PATIENT
  Sex: Female

DRUGS (2)
  1. TYMLOS [Suspect]
     Active Substance: ABALOPARATIDE
     Indication: Senile osteoporosis
     Dosage: 80 MICROGRAM, QD
     Route: 058
     Dates: start: 20220222, end: 20220420
  2. TYMLOS [Suspect]
     Active Substance: ABALOPARATIDE
     Dosage: 80 MICROGRAM, QD
     Route: 058
     Dates: start: 20220519, end: 20220602

REACTIONS (8)
  - Quality of life decreased [Unknown]
  - Depression [Recovering/Resolving]
  - Initial insomnia [Unknown]
  - Fatigue [Unknown]
  - Headache [Unknown]
  - Nausea [Recovering/Resolving]
  - Heart rate increased [Unknown]
  - Palpitations [Unknown]
